FAERS Safety Report 9496289 (Version 1)
Quarter: 2013Q3

REPORT INFORMATION
  Report Type: Spontaneous
  Country: GB (occurrence: None)
  Receive Date: 20130829
  Receipt Date: 20130829
  Transmission Date: 20140515
  Serious: Yes (Death, Hospitalization)
  Sender: FDA-Public Use
  Company Number: THQ2013A06267

PATIENT
  Age: 52 Year
  Sex: Female

DRUGS (3)
  1. LANSOPRAZOLE (LANSOPRAZOLE) [Suspect]
     Indication: DYSPEPSIA
  2. DEXAMETHASONE [Suspect]
     Indication: INFLAMMATION
     Dates: start: 20130603, end: 201306
  3. DEXAMETHASONE [Suspect]
     Dates: start: 20130603, end: 201306

REACTIONS (12)
  - Large intestine perforation [None]
  - Cushing^s syndrome [None]
  - Delirium [None]
  - Confusional state [None]
  - Aphagia [None]
  - Dyspepsia [None]
  - Gait disturbance [None]
  - Malaise [None]
  - Incoherent [None]
  - Depression [None]
  - Muscle atrophy [None]
  - Amnesia [None]
